FAERS Safety Report 24939521 (Version 1)
Quarter: 2025Q1

REPORT INFORMATION
  Report Type: Spontaneous
  Country: US (occurrence: US)
  Receive Date: 20250206
  Receipt Date: 20250206
  Transmission Date: 20250409
  Serious: No
  Sender: AMGEN
  Company Number: US-AMGEN-USASP2025020204

PATIENT
  Age: 8 Year
  Sex: Female

DRUGS (2)
  1. PROLIA [Suspect]
     Active Substance: DENOSUMAB
     Indication: Product used for unknown indication
     Dosage: UNK, Q6MO
     Route: 065
  2. TALTZ [Concomitant]
     Active Substance: IXEKIZUMAB

REACTIONS (5)
  - Off label use [Unknown]
  - Dermatitis [Unknown]
  - Erythema [Recovered/Resolved]
  - Rash papular [Unknown]
  - Pruritus [Recovered/Resolved]

NARRATIVE: CASE EVENT DATE: 20250101
